FAERS Safety Report 17416311 (Version 2)
Quarter: 2020Q1

REPORT INFORMATION
  Report Type: Spontaneous
  Country: IE (occurrence: IE)
  Receive Date: 20200213
  Receipt Date: 20200224
  Transmission Date: 20200409
  Serious: Yes (Death, Other)
  Sender: FDA-Public Use
  Company Number: IE-PFIZER INC-2020056003

PATIENT
  Age: 39 Year
  Sex: Male

DRUGS (7)
  1. ZIDOVUDINE. [Concomitant]
     Active Substance: ZIDOVUDINE
     Route: 065
  2. ATOVAQUONE. [Concomitant]
     Active Substance: ATOVAQUONE
  3. LIPOSOMAL DOXORUBICIN HCL [Suspect]
     Active Substance: DOXORUBICIN HYDROCHLORIDE
     Indication: HIV INFECTION
     Dosage: 10 MILLIGRAM/SQ. METER, QMO (MAINTENANCE)
     Route: 030
  4. ASPIRIN (E.C.) [Concomitant]
     Active Substance: ASPIRIN
  5. FILGRASTIM [Suspect]
     Active Substance: FILGRASTIM
     Indication: NEUTROPENIA
     Dosage: UNK
     Route: 065
  6. LIPOSOMAL DOXORUBICIN HCL [Suspect]
     Active Substance: DOXORUBICIN HYDROCHLORIDE
     Indication: KAPOSI^S SARCOMA
     Dosage: 20 MILLIGRAM/SQ. METER, QMO (INDUCATION) (FOR SIX MONTHS)
     Route: 030
  7. PENTAMIDINE [Concomitant]
     Active Substance: PENTAMIDINE

REACTIONS (3)
  - Central nervous system lymphoma [Fatal]
  - Neutropenia [Unknown]
  - Deep vein thrombosis [Unknown]
